FAERS Safety Report 4376327-9 (Version None)
Quarter: 2004Q2

REPORT INFORMATION
  Report Type: 
  Country: None (occurrence: None)
  Receive Date: 20040603
  Receipt Date: 20031014
  Transmission Date: 20050107
  Serious: Yes (Other)
  Sender: FDA-Public Use
  Company Number: 200319001US

PATIENT
  Age: 60 Year
  Sex: Male

DRUGS (1)
  1. LOVENOX [Suspect]
     Indication: DEEP VEIN THROMBOSIS
     Dosage: 80 MG BID SC
     Route: 058
     Dates: start: 20031006, end: 20031011

REACTIONS (1)
  - RECTAL HAEMORRHAGE [None]
